FAERS Safety Report 12655133 (Version 1)
Quarter: 2016Q3

REPORT INFORMATION
  Report Type: Spontaneous
  Country: KR (occurrence: KR)
  Receive Date: 20160816
  Receipt Date: 20160816
  Transmission Date: 20161109
  Serious: Yes (Hospitalization, Other)
  Sender: FDA-Public Use
  Company Number: KR-CITRON PHARMA LLC-B16-0099-AE

PATIENT
  Age: 36 Year
  Sex: Male

DRUGS (1)
  1. CHLORTHALIDONE. [Suspect]
     Active Substance: CHLORTHALIDONE
     Indication: PRODUCT USED FOR UNKNOWN INDICATION
     Dosage: UNK
     Route: 065

REACTIONS (8)
  - Electrocardiogram QT prolonged [Recovered/Resolved]
  - Vomiting [Recovered/Resolved]
  - Syncope [Recovered/Resolved]
  - Gastrooesophageal reflux disease [Recovered/Resolved]
  - Reflux gastritis [Recovered/Resolved]
  - Nausea [Recovered/Resolved]
  - Heart rate abnormal [Recovered/Resolved]
  - Hypokalaemia [Recovered/Resolved]
